FAERS Safety Report 6726182-4 (Version None)
Quarter: 2010Q2

REPORT INFORMATION
  Report Type: 
  Country: None (occurrence: None)
  Receive Date: 20100514
  Receipt Date: 20100503
  Transmission Date: 20101027
  Serious: Yes (Hospitalization, Other)
  Sender: FDA-Public Use
  Company Number: US-PFIZER INC-2010026315

PATIENT
  Sex: Female
  Weight: 72.6 kg

DRUGS (5)
  1. SUTENT [Suspect]
     Indication: RENAL CELL CARCINOMA
     Dosage: 37.5 MG, 1X/DAY 4/2 SCHEDULE
     Route: 048
     Dates: start: 20091001, end: 20100123
  2. ATIVAN [Concomitant]
     Indication: INSOMNIA
     Dosage: 0.5 MG, 1 OR 2  TIMES A DAY, AS NEEDED
  3. ATIVAN [Concomitant]
     Dosage: FREQUENCY: AS NEEDED,
  4. COMPAZINE [Concomitant]
     Indication: NAUSEA
     Dosage: UNK
  5. COMPAZINE [Concomitant]
     Dosage: FREQUENCY: AS NEEDED,

REACTIONS (3)
  - ABSCESS [None]
  - COLONIC FISTULA [None]
  - INTESTINAL PERFORATION [None]
